FAERS Safety Report 19364520 (Version 1)
Quarter: 2021Q2

REPORT INFORMATION
  Report Type: Spontaneous
  Country: US (occurrence: US)
  Receive Date: 20210602
  Receipt Date: 20210602
  Transmission Date: 20210717
  Serious: No
  Sender: FDA-Public Use
  Company Number: None

PATIENT
  Age: 37 Year
  Sex: Female

DRUGS (1)
  1. STELARA [Suspect]
     Active Substance: USTEKINUMAB
     Indication: CROHN^S DISEASE
     Dosage: OTHER DOSE:1 SYR;OTHER FREQUENCY:Q8WK;?
     Route: 058
     Dates: start: 20181002

REACTIONS (2)
  - Maternal drugs affecting foetus [None]
  - Maternal exposure timing unspecified [None]

NARRATIVE: CASE EVENT DATE: 20210501
